FAERS Safety Report 4335669-3 (Version None)
Quarter: 2004Q2

REPORT INFORMATION
  Report Type: 
  Country: None (occurrence: None)
  Receive Date: 20040409
  Receipt Date: 20031113
  Transmission Date: 20050107
  Serious: No
  Sender: FDA-Public Use
  Company Number: US-GLAXOSMITHKLINE-A0439644A

PATIENT
  Age: 54 Year
  Sex: Female

DRUGS (4)
  1. PAXIL CR [Suspect]
     Indication: GENERALISED ANXIETY DISORDER
     Dosage: 12.5MG PER DAY
     Route: 048
     Dates: start: 20030501, end: 20031101
  2. XANAX [Concomitant]
     Dosage: .25MG THREE TIMES PER DAY
     Dates: start: 20030101
  3. PREMARIN [Concomitant]
  4. AYGESTIN [Concomitant]

REACTIONS (1)
  - ALOPECIA [None]
